FAERS Safety Report 6614346-X (Version None)
Quarter: 2010Q1

REPORT INFORMATION
  Report Type: 
  Country: None (occurrence: None)
  Receive Date: 20100303
  Receipt Date: 20100303
  Transmission Date: 20100710
  Serious: Yes (Hospitalization)
  Sender: FDA-Public Use
  Company Number: None

PATIENT
  Age: 63 Year
  Sex: Male
  Weight: 81 kg

DRUGS (1)
  1. GENTUZUMAB [Suspect]
     Indication: NEOPLASM MALIGNANT
     Dosage: 5 MG ONCE IV
     Route: 042
     Dates: start: 20100201, end: 20100201

REACTIONS (4)
  - ANAPHYLACTIC REACTION [None]
  - ANGINA PECTORIS [None]
  - HYPOTENSION [None]
  - INFUSION RELATED REACTION [None]
